FAERS Safety Report 8588566-1 (Version None)
Quarter: 2012Q3

REPORT INFORMATION
  Report Type: 
  Country: None (occurrence: None)
  Receive Date: 20120813
  Receipt Date: 20120731
  Transmission Date: 20120928
  Serious: Yes (Hospitalization)
  Sender: FDA-Public Use
  Company Number: GB-NOVOPROD-357032

PATIENT
  Age: 62 Year
  Sex: Female

DRUGS (2)
  1. NOVORAPID FLEXPEN [Suspect]
     Indication: TYPE 1 DIABETES MELLITUS
     Dosage: 3 IU, UNK (3 UNITS AFTER MEALS)
  2. LANTUS [Concomitant]
     Indication: TYPE 1 DIABETES MELLITUS
     Dosage: 12 IU, QD (DAILY)

REACTIONS (2)
  - AMNESIA [None]
  - HYPOGLYCAEMIA [None]
